FAERS Safety Report 9661499 (Version 2)
Quarter: 2013Q4

REPORT INFORMATION
  Report Type: Spontaneous
  Country: US (occurrence: US)
  Receive Date: 20131031
  Receipt Date: 20131031
  Transmission Date: 20140711
  Serious: No
  Sender: FDA-Public Use
  Company Number: US-PURDUE-USA-2010-0052191

PATIENT
  Sex: Male
  Weight: 150.57 kg

DRUGS (2)
  1. OXYCONTIN (NDA 22-272) [Suspect]
     Indication: BACK PAIN
     Dosage: 120 MG, AM
     Dates: start: 20100927
  2. OXYCONTIN (NDA 22-272) [Suspect]
     Dosage: 80 MG, PM
     Dates: start: 20100927

REACTIONS (4)
  - Inadequate analgesia [Not Recovered/Not Resolved]
  - Drug effect decreased [Not Recovered/Not Resolved]
  - Abdominal discomfort [Not Recovered/Not Resolved]
  - Malaise [Unknown]
